FAERS Safety Report 5022160-4 (Version None)
Quarter: 2006Q2

REPORT INFORMATION
  Report Type: 
  Country: None (occurrence: None)
  Receive Date: 20060428
  Receipt Date: 20060110
  Transmission Date: 20061013
  Serious: Yes (Death, Hospitalization)
  Sender: FDA-Public Use
  Company Number: COT_0359_2006

PATIENT
  Age: 63 Year
  Sex: Female
  Weight: 57.6068 kg

DRUGS (11)
  1. VENTAVIS [Suspect]
     Indication: PULMONARY HYPERTENSION
     Dosage: 5 MCG 6XD IH
     Dates: start: 20051114, end: 20060106
  2. ASPIRIN [Concomitant]
  3. PREDNISONE [Concomitant]
  4. COUMADIN [Concomitant]
  5. ZETIA [Concomitant]
  6. DILTIA XT [Concomitant]
  7. DIGITEK [Concomitant]
  8. ACTONEL [Concomitant]
  9. LASIX [Concomitant]
  10. PRILOSEC [Concomitant]
  11. SYNTHROID [Concomitant]

REACTIONS (7)
  - ANAEMIA [None]
  - CONDITION AGGRAVATED [None]
  - PLEURAL EFFUSION [None]
  - PNEUMONIA STREPTOCOCCAL [None]
  - PULMONARY HYPERTENSION [None]
  - RIGHT VENTRICULAR FAILURE [None]
  - SYNCOPE [None]
